FAERS Safety Report 9913732 (Version 1)
Quarter: 2014Q1

REPORT INFORMATION
  Report Type: Spontaneous
  Country: JP (occurrence: JP)
  Receive Date: 20140220
  Receipt Date: 20140220
  Transmission Date: 20141002
  Serious: Yes (Hospitalization)
  Sender: FDA-Public Use
  Company Number: JP-BAXTER-2014BAX008513

PATIENT
  Sex: Male
  Weight: 68 kg

DRUGS (3)
  1. DIANEAL-N PD-4 1.5 PD SOLUTION [Suspect]
     Indication: GLOMERULONEPHRITIS CHRONIC
     Route: 033
  2. DIANEAL-N PD-4 2.5 PD SOLUTION [Suspect]
     Indication: GLOMERULONEPHRITIS CHRONIC
     Route: 033
  3. EXTRANEAL PD SOLUTION [Suspect]
     Indication: GLOMERULONEPHRITIS CHRONIC
     Route: 033

REACTIONS (1)
  - Fall [Unknown]
